FAERS Safety Report 24192799 (Version 2)
Quarter: 2024Q4

REPORT INFORMATION
  Report Type: Spontaneous
  Country: GB (occurrence: GB)
  Receive Date: 20240809
  Receipt Date: 20241016
  Transmission Date: 20250115
  Serious: Yes (Other)
  Sender: CSL BEHRING
  Company Number: GB-BEH-2024176645

PATIENT
  Age: 39 Year
  Sex: Female
  Weight: 77.6 kg

DRUGS (4)
  1. PRIVIGEN [Suspect]
     Active Substance: HUMAN IMMUNOGLOBULIN G
     Indication: Acquired immunodeficiency syndrome
     Dosage: UNK
     Route: 065
     Dates: start: 202002
  2. PRIVIGEN [Suspect]
     Active Substance: HUMAN IMMUNOGLOBULIN G
     Dosage: 20 MG
     Route: 042
     Dates: start: 20240722, end: 20240722
  3. FERROUS FUMARATE [Concomitant]
     Active Substance: FERROUS FUMARATE
     Indication: Anaemia
     Dosage: 210 MG
     Route: 048
     Dates: start: 202404
  4. LEVOTHYROXINE SODIUM [Concomitant]
     Active Substance: LEVOTHYROXINE SODIUM
     Indication: Hypothyroidism
     Dosage: 150 MG
     Route: 048
     Dates: start: 202308

REACTIONS (5)
  - Rash pruritic [Recovered/Resolved]
  - Infusion site rash [Recovered/Resolved]
  - Ear swelling [Recovered/Resolved]
  - Feeling hot [Recovered/Resolved]
  - Urticaria [Recovered/Resolved]

NARRATIVE: CASE EVENT DATE: 20240722
